FAERS Safety Report 17865032 (Version 1)
Quarter: 2020Q2

REPORT INFORMATION
  Report Type: Spontaneous
  Country: LT (occurrence: LT)
  Receive Date: 20200605
  Receipt Date: 20200605
  Transmission Date: 20200714
  Serious: Yes (Other)
  Sender: FDA-Public Use
  Company Number: LT-BAYER-2020-100576

PATIENT
  Age: 44 Year
  Sex: Female

DRUGS (2)
  1. GADOBUTROL. [Suspect]
     Active Substance: GADOBUTROL
     Indication: GALLBLADDER DISORDER
  2. GADOBUTROL. [Suspect]
     Active Substance: GADOBUTROL
     Indication: MAGNETIC RESONANCE IMAGING
     Dosage: UNK, ONCE

REACTIONS (18)
  - Anxiety [None]
  - Muscle twitching [None]
  - Bone pain [Not Recovered/Not Resolved]
  - Laboratory test abnormal [None]
  - Thirst [None]
  - Tinnitus [None]
  - Insomnia [None]
  - Nontherapeutic agent urine positive [None]
  - Contrast media toxicity [None]
  - Contrast media allergy [None]
  - Chills [None]
  - Nontherapeutic agent blood positive [None]
  - Heart rate increased [None]
  - Back pain [None]
  - Hypoaesthesia [Not Recovered/Not Resolved]
  - Paraesthesia [Not Recovered/Not Resolved]
  - Gadolinium deposition disease [None]
  - Hot flush [None]
